FAERS Safety Report 8572983-X (Version None)
Quarter: 2012Q3

REPORT INFORMATION
  Report Type: 
  Country: None (occurrence: None)
  Receive Date: 20120806
  Receipt Date: 20120711
  Transmission Date: 20120928
  Serious: Yes (Hospitalization)
  Sender: FDA-Public Use
  Company Number: US-ASTRAZENECA-2012SE31080

PATIENT
  Age: 63 Year
  Sex: Male

DRUGS (17)
  1. LACTULOSE [Concomitant]
     Dates: start: 20120429, end: 20120504
  2. CRESTOR [Suspect]
     Indication: ACUTE RESPIRATORY DISTRESS SYNDROME
     Route: 048
     Dates: start: 20120419, end: 20120419
  3. ALBUMIN (HUMAN) [Concomitant]
     Dates: start: 20120430, end: 20120504
  4. DIURIL [Concomitant]
     Dates: start: 20120430
  5. FLAGYL [Concomitant]
     Dates: start: 20120430, end: 20120501
  6. CUBICIN [Suspect]
     Dosage: 200ML/HOUR, 580MG
     Route: 041
     Dates: start: 20120502, end: 20120502
  7. VANCOMYCIN [Concomitant]
     Dates: start: 20120430, end: 20120503
  8. MEROPENEM [Concomitant]
     Dates: start: 20120429, end: 20120504
  9. CRESTOR [Suspect]
     Indication: SEPSIS
     Route: 048
     Dates: start: 20120419, end: 20120419
  10. CRESTOR [Suspect]
     Route: 048
     Dates: start: 20120420, end: 20120501
  11. FERROUS SULFATE AND FOLIC ACID [Concomitant]
     Dates: start: 20120430, end: 20120504
  12. CASOFUNGIN [Concomitant]
     Dates: start: 20120430, end: 20120503
  13. ATROVENT [Concomitant]
     Dates: start: 20120430, end: 20120504
  14. LEVLBUTEROL [Concomitant]
     Dates: start: 20120429, end: 20120504
  15. CRESTOR [Suspect]
     Route: 048
     Dates: start: 20120420, end: 20120501
  16. CUBICIN [Suspect]
     Dosage: 200ML/HOUR, 580MG
     Route: 041
     Dates: start: 20120430, end: 20120430
  17. LEVOFLOXACIN [Concomitant]
     Dates: start: 20120429, end: 20120501

REACTIONS (4)
  - RHABDOMYOLYSIS [None]
  - BLOOD CREATINE PHOSPHOKINASE INCREASED [None]
  - ASPARTATE AMINOTRANSFERASE INCREASED [None]
  - DRUG INTERACTION [None]
